FAERS Safety Report 8135637-X (Version None)
Quarter: 2012Q1

REPORT INFORMATION
  Report Type: 
  Country: None (occurrence: None)
  Receive Date: 20120214
  Receipt Date: 20120208
  Transmission Date: 20120608
  Serious: Yes (Hospitalization)
  Sender: FDA-Public Use
  Company Number: PHHY2011US04885

PATIENT
  Sex: Female

DRUGS (3)
  1. DILANTIN [Suspect]
     Dosage: UNK UKN, UNK
  2. MYFORTIC [Suspect]
     Indication: RENAL TRANSPLANT
     Dosage: 340 MG, BID
     Route: 048
     Dates: start: 20070101
  3. MYFORTIC [Suspect]
     Dosage: 360 MG, BID
     Route: 048
     Dates: start: 20110614

REACTIONS (8)
  - MALAISE [None]
  - VOMITING [None]
  - PAIN [None]
  - FALL [None]
  - DYSSTASIA [None]
  - WRIST FRACTURE [None]
  - OVERDOSE [None]
  - SOMNOLENCE [None]
